FAERS Safety Report 24936130 (Version 1)
Quarter: 2025Q1

REPORT INFORMATION
  Report Type: Report from Study
  Country: US (occurrence: US)
  Receive Date: 20250206
  Receipt Date: 20250206
  Transmission Date: 20250408
  Serious: Yes (Other)
  Sender: EXELIXIS
  Company Number: US-EXELIXIS-EXL-2024-001598

PATIENT
  Sex: Female

DRUGS (11)
  1. CABOMETYX [Suspect]
     Active Substance: CABOZANTINIB S-MALATE
     Indication: Carcinoid tumour
     Dosage: 60 MG, QD
     Dates: start: 20241021, end: 20241029
  2. CABOMETYX [Suspect]
     Active Substance: CABOZANTINIB S-MALATE
     Dosage: 40 MG, QD
     Dates: start: 20241031, end: 20241104
  3. CABOMETYX [Suspect]
     Active Substance: CABOZANTINIB S-MALATE
  4. CABOMETYX [Suspect]
     Active Substance: CABOZANTINIB S-MALATE
     Dosage: 20 MG, QD
     Dates: start: 20241223, end: 20241225
  5. POTASSIUM CHLORIDE [Concomitant]
     Active Substance: POTASSIUM CHLORIDE
  6. METOPROLOL SUCCINATE [Concomitant]
     Active Substance: METOPROLOL SUCCINATE
  7. MAGNESIUM OXIDE [Concomitant]
     Active Substance: MAGNESIUM OXIDE
  8. LIDOCAINE\PRILOCAINE [Concomitant]
     Active Substance: LIDOCAINE\PRILOCAINE
  9. ACETAMINOPHEN\HYDROCODONE [Concomitant]
     Active Substance: ACETAMINOPHEN\HYDROCODONE
  10. HYDRALAZINE [Concomitant]
     Active Substance: HYDRALAZINE HYDROCHLORIDE
  11. LORATADINE [Concomitant]
     Active Substance: LORATADINE

REACTIONS (11)
  - Hypertension [Not Recovered/Not Resolved]
  - Drug intolerance [Unknown]
  - Dizziness [Not Recovered/Not Resolved]
  - Oral pain [Not Recovered/Not Resolved]
  - Nausea [Not Recovered/Not Resolved]
  - Diarrhoea [Not Recovered/Not Resolved]
  - Rash pruritic [Recovered/Resolved]
  - Rash macular [Recovered/Resolved]
  - Sinus headache [Not Recovered/Not Resolved]
  - Oral discomfort [Not Recovered/Not Resolved]
  - Off label use [Unknown]
